FAERS Safety Report 23764547 (Version 1)
Quarter: 2024Q2

REPORT INFORMATION
  Report Type: Spontaneous
  Country: US (occurrence: US)
  Receive Date: 20240420
  Receipt Date: 20240420
  Transmission Date: 20240716
  Serious: No
  Sender: FDA-Public Use
  Company Number: US-HALEON-2166356

PATIENT

DRUGS (1)
  1. SENSODYNE SENSITIVITY AND GUM WHITENING [Suspect]
     Active Substance: STANNOUS FLUORIDE
     Indication: Product used for unknown indication
     Dosage: EXPDATE:20250831
     Route: 048
     Dates: start: 20240323

REACTIONS (3)
  - Dry mouth [Unknown]
  - Tongue dry [Unknown]
  - Hypersensitivity [Unknown]
